FAERS Safety Report 11707295 (Version 2)
Quarter: 2015Q4

REPORT INFORMATION
  Report Type: Spontaneous
  Country: US (occurrence: US)
  Receive Date: 20151106
  Receipt Date: 20151201
  Transmission Date: 20160304
  Serious: Yes (Other)
  Sender: FDA-Public Use
  Company Number: US-BAYER-2015-462220

PATIENT
  Sex: Female

DRUGS (2)
  1. AFRIN ORIGINAL [Suspect]
     Active Substance: OXYMETAZOLINE HYDROCHLORIDE
     Dosage: 1-2 DOSAGE FORM, AS NEEDED
  2. AFRIN ORIGINAL [Suspect]
     Active Substance: OXYMETAZOLINE HYDROCHLORIDE
     Dosage: 1-2 DOSAGE FORM, AS NEEDED

REACTIONS (3)
  - Drug dependence [Not Recovered/Not Resolved]
  - Intentional product use issue [None]
  - Dyspnoea [None]
